FAERS Safety Report 8156697-6 (Version None)
Quarter: 2012Q1

REPORT INFORMATION
  Report Type: 
  Country: None (occurrence: None)
  Receive Date: 20120221
  Receipt Date: 20120221
  Transmission Date: 20120608
  Serious: Yes (Hospitalization)
  Sender: FDA-Public Use
  Company Number: None

PATIENT
  Sex: Male
  Weight: 69 kg

DRUGS (4)
  1. DACARBAZINE [Suspect]
     Dosage: 656 MG
  2. DOXORUBICIN HCL [Suspect]
     Dosage: 44 MG
  3. VINBLASTINE SULFATE [Suspect]
     Dosage: 10 MG
  4. BLEOMYCIN SULFATE [Suspect]
     Dosage: 16 UNIT

REACTIONS (15)
  - DYSPEPSIA [None]
  - PLATELET COUNT DECREASED [None]
  - HYPOPHOSPHATAEMIA [None]
  - WHITE BLOOD CELL COUNT DECREASED [None]
  - ABDOMINAL PAIN UPPER [None]
  - DIARRHOEA [None]
  - HYPONATRAEMIA [None]
  - ANAEMIA [None]
  - CONSTIPATION [None]
  - LYMPHOCYTE COUNT DECREASED [None]
  - HYPOCALCAEMIA [None]
  - FEBRILE NEUTROPENIA [None]
  - HYPOKALAEMIA [None]
  - FLUID INTAKE REDUCED [None]
  - DEHYDRATION [None]
